FAERS Safety Report 6703446-1 (Version None)
Quarter: 2010Q2

REPORT INFORMATION
  Report Type: 
  Country: None (occurrence: None)
  Receive Date: 20100423
  Receipt Date: 20091227
  Transmission Date: 20101027
  Serious: Yes (Hospitalization)
  Sender: FDA-Public Use
  Company Number: SPV1-2009-02608

PATIENT
  Age: 14 Year
  Sex: Male
  Weight: 79.4 kg

DRUGS (3)
  1. VYVANSE [Suspect]
     Indication: ATTENTION DEFICIT/HYPERACTIVITY DISORDER
     Dosage: TWO 50 MG CAPSULES, 1X/DAY:QD, ORAL
     Route: 048
     Dates: start: 20090101, end: 20091212
  2. FEXOFENADINE HCL [Concomitant]
  3. DORYX /00055701/ (DOXYCYCLINE) [Concomitant]

REACTIONS (4)
  - HALLUCINATION, AUDITORY [None]
  - INSOMNIA [None]
  - OFF LABEL USE [None]
  - OVERDOSE [None]
